FAERS Safety Report 17246773 (Version 1)
Quarter: 2020Q1

REPORT INFORMATION
  Report Type: Spontaneous
  Country: CZ (occurrence: CZ)
  Receive Date: 20200108
  Receipt Date: 20200108
  Transmission Date: 20200409
  Serious: Yes (Other)
  Sender: FDA-Public Use
  Company Number: NVSC2020CZ001840

PATIENT
  Age: 72 Year
  Sex: Male

DRUGS (2)
  1. PREDNISONE. [Concomitant]
     Active Substance: PREDNISONE
     Indication: PROSTATE CANCER RECURRENT
     Dosage: UNK UNK, CYCLIC
     Route: 065
     Dates: start: 201511
  2. DOCETAXEL. [Suspect]
     Active Substance: DOCETAXEL
     Indication: PROSTATE CANCER RECURRENT
     Dosage: UNK UNK, CYCLIC
     Route: 065
     Dates: start: 201511

REACTIONS (5)
  - Prostate cancer recurrent [Unknown]
  - Metastases to bone [Recovering/Resolving]
  - Pain [Recovering/Resolving]
  - Drug ineffective [Unknown]
  - Malignant neoplasm progression [Unknown]
